FAERS Safety Report 8507340 (Version 2)
Quarter: 2015Q1

REPORT INFORMATION
  Report Type: Spontaneous
  Country: US (occurrence: US)
  Receive Date: 20120412
  Receipt Date: 20150313
  Transmission Date: 20150721
  Serious: No
  Sender: FDA-Public Use
  Company Number: US-ASTRAZENECA-2011SE04507

PATIENT
  Age: 78 Year
  Sex: Female

DRUGS (2)
  1. NEXIUM [Suspect]
     Active Substance: ESOMEPRAZOLE MAGNESIUM
     Indication: GASTROOESOPHAGEAL REFLUX DISEASE
     Route: 048
  2. NEXIUM [Suspect]
     Active Substance: ESOMEPRAZOLE MAGNESIUM
     Indication: GASTROOESOPHAGEAL REFLUX DISEASE
     Route: 048

REACTIONS (13)
  - Regurgitation [Unknown]
  - Headache [Unknown]
  - Discomfort [Unknown]
  - Intentional product misuse [Unknown]
  - Chest discomfort [Unknown]
  - Extra dose administered [Unknown]
  - Dyspepsia [Unknown]
  - Feeling abnormal [Unknown]
  - Osteopenia [Unknown]
  - Drug ineffective [Unknown]
  - Diabetes mellitus [Unknown]
  - Gastrooesophageal reflux disease [Unknown]
  - Drug effect incomplete [Unknown]
